FAERS Safety Report 11272261 (Version 1)
Quarter: 2015Q3

REPORT INFORMATION
  Report Type: Spontaneous
  Country: US (occurrence: None)
  Receive Date: 20150713
  Receipt Date: 20150713
  Transmission Date: 20151125
  Serious: No
  Sender: FDA-Public Use
  Company Number: 2014-00017

PATIENT
  Age: 38 Year
  Sex: Male
  Weight: 88.45 kg

DRUGS (1)
  1. ZICAM EXTREME CONGESTION RELIEF [Suspect]
     Active Substance: OXYMETAZOLINE HYDROCHLORIDE
     Indication: NASAL CONGESTION
     Dosage: 1 DOSE, NASAL
     Route: 045
     Dates: start: 20140126

REACTIONS (1)
  - Anosmia [None]

NARRATIVE: CASE EVENT DATE: 20140126
